FAERS Safety Report 9494370 (Version 2)
Quarter: 2013Q3

REPORT INFORMATION
  Report Type: Report from Study
  Country: US (occurrence: US)
  Receive Date: 20130903
  Receipt Date: 20130903
  Transmission Date: 20140515
  Serious: Yes (Other)
  Sender: FDA-Public Use
  Company Number: US-BAYER-2013-094516

PATIENT
  Age: 53 Year
  Sex: Male

DRUGS (3)
  1. STIVARGA [Suspect]
     Indication: COLON CANCER
     Dosage: DAILY DOSE 160 MG (21 ON, 7 OFF)
     Route: 048
     Dates: start: 20130726, end: 20130731
  2. STIVARGA [Suspect]
     Indication: COLON CANCER
     Dosage: 160 MG, QD X 21D, 7 DAYS OFF
     Route: 048
  3. STIVARGA [Suspect]
     Indication: COLON CANCER
     Dosage: 160 MG, QD X 21D, 7 DAYS OFF
     Route: 048

REACTIONS (2)
  - Contusion [Recovering/Resolving]
  - Oedema peripheral [Recovering/Resolving]
